FAERS Safety Report 20332058 (Version 1)
Quarter: 2022Q1

REPORT INFORMATION
  Report Type: Spontaneous
  Country: FR (occurrence: FR)
  Receive Date: 20220113
  Receipt Date: 20220113
  Transmission Date: 20220424
  Serious: Yes (Death)
  Sender: FDA-Public Use
  Company Number: None

PATIENT
  Age: 84 Year
  Sex: Male
  Weight: 80 kg

DRUGS (1)
  1. PEMBROLIZUMAB [Suspect]
     Active Substance: PEMBROLIZUMAB
     Indication: Metastatic malignant melanoma
     Dosage: UNK
     Route: 042
     Dates: start: 20211119

REACTIONS (2)
  - Immune-mediated myocarditis [Fatal]
  - Immune-mediated myositis [Fatal]

NARRATIVE: CASE EVENT DATE: 20211214
